FAERS Safety Report 8917543 (Version 1)
Quarter: 2012Q4

REPORT INFORMATION
  Report Type: 
  Country: ZA (occurrence: ZA)
  Receive Date: 20121120
  Receipt Date: 20121120
  Transmission Date: 20130627
  Serious: Yes (Death)
  Sender: FDA-Public Use
  Company Number: ZA-ASTRAZENECA-2012SE87283

PATIENT
  Sex: Female

DRUGS (1)
  1. NEXIAM [Suspect]
     Indication: PEPTIC ULCER
     Route: 048

REACTIONS (1)
  - Gastric cancer [Fatal]
